FAERS Safety Report 12959509 (Version 2)
Quarter: 2016Q4

REPORT INFORMATION
  Report Type: Report from Study
  Country: US (occurrence: US)
  Receive Date: 20161121
  Receipt Date: 20161227
  Transmission Date: 20170207
  Serious: Yes (Hospitalization, Other)
  Sender: FDA-Public Use
  Company Number: US-BAYER-2016-174421

PATIENT
  Age: 63 Year
  Sex: Male

DRUGS (4)
  1. NEXAVAR [Suspect]
     Active Substance: SORAFENIB
     Indication: HEPATOCELLULAR CARCINOMA
     Dosage: 200 MG, DAILY
     Route: 048
     Dates: start: 20161106
  2. NEXAVAR [Suspect]
     Active Substance: SORAFENIB
     Indication: HEPATOCELLULAR CARCINOMA
     Dosage: 2 TABLETS(DAILY)
     Route: 048
     Dates: start: 20160903, end: 20160925
  3. NEXAVAR [Suspect]
     Active Substance: SORAFENIB
     Indication: HEPATOCELLULAR CARCINOMA
     Dosage: DAILY DOSE OF 600 MG (2 TABLETS IN AM, 1 TABLET IN PM)
     Route: 048
     Dates: start: 20160926, end: 20161002
  4. NEXAVAR [Suspect]
     Active Substance: SORAFENIB
     Indication: HEPATOCELLULAR CARCINOMA
     Dosage: DAILY DOSE OF 400 MG (2 TABLETS DAILY)
     Route: 048
     Dates: start: 20161003, end: 2016

REACTIONS (26)
  - Decreased appetite [None]
  - Adverse drug reaction [None]
  - Gait disturbance [None]
  - Tongue injury [None]
  - Epistaxis [None]
  - Diarrhoea [Recovering/Resolving]
  - Blood pressure increased [None]
  - Dry skin [None]
  - Fatigue [None]
  - Blood pressure increased [None]
  - Activities of daily living impaired [None]
  - Incorrect product storage [None]
  - Tooth fracture [None]
  - Asthenia [None]
  - Hypophagia [None]
  - Pruritus [None]
  - Weight decreased [None]
  - Fatigue [None]
  - Haemorrhage [None]
  - Ageusia [None]
  - Fluid intake reduced [None]
  - Abdominal pain [Recovering/Resolving]
  - Chills [None]
  - Middle insomnia [None]
  - Dyspnoea [None]
  - Diarrhoea [None]

NARRATIVE: CASE EVENT DATE: 2016
